FAERS Safety Report 6642848-9 (Version None)
Quarter: 2010Q1

REPORT INFORMATION
  Report Type: 
  Country: None (occurrence: None)
  Receive Date: 20100319
  Receipt Date: 20100310
  Transmission Date: 20100710
  Serious: Yes (Other)
  Sender: FDA-Public Use
  Company Number: GB-PFIZER INC-2010030764

PATIENT
  Age: 42 Year
  Sex: Female
  Weight: 62 kg

DRUGS (3)
  1. DOXAZOSIN MESYLATE [Suspect]
     Indication: PAIN
     Dosage: 1 MG, UNK
     Route: 048
     Dates: start: 20091201
  2. DOXAZOSIN MESYLATE [Suspect]
     Indication: VASOSPASM
  3. NIFEDIPINE [Concomitant]
     Indication: VASOSPASM
     Dosage: 10 MG, UNK
     Route: 048
     Dates: start: 20090109

REACTIONS (2)
  - ABDOMINAL PAIN [None]
  - RECTAL HAEMORRHAGE [None]
